FAERS Safety Report 11744488 (Version 3)
Quarter: 2015Q4

REPORT INFORMATION
  Report Type: Report from Study
  Country: FR (occurrence: FR)
  Receive Date: 20151116
  Receipt Date: 20151204
  Transmission Date: 20160304
  Serious: Yes (Life-Threatening, Other)
  Sender: FDA-Public Use
  Company Number: FR-BRISTOL-MYERS SQUIBB COMPANY-BMS-2015-029266

PATIENT
  Age: 32 Year
  Sex: Male

DRUGS (1)
  1. NIVOLUMAB [Suspect]
     Active Substance: NIVOLUMAB
     Indication: HODGKIN^S DISEASE
     Dosage: UNK
     Route: 065
     Dates: start: 201504, end: 201506

REACTIONS (11)
  - Respiratory distress [Unknown]
  - Hypothyroidism [Unknown]
  - Myositis [Unknown]
  - Blood thyroid stimulating hormone increased [Recovering/Resolving]
  - Rhabdomyolysis [Unknown]
  - Myocarditis [Unknown]
  - Cholestasis [Unknown]
  - Multi-organ failure [Unknown]
  - Conduction disorder [Unknown]
  - Dermatitis bullous [Unknown]
  - Pancreatitis [Unknown]

NARRATIVE: CASE EVENT DATE: 201510
